FAERS Safety Report 4346974-9 (Version None)
Quarter: 2004Q1

REPORT INFORMATION
  Report Type: 
  Country: None (occurrence: None)
  Receive Date: 20040329
  Receipt Date: 20031218
  Transmission Date: 20041129
  Serious: No
  Sender: FDA-Public Use
  Company Number: USA031255055

PATIENT
  Age: 33 Year
  Sex: Male
  Weight: 77 kg

DRUGS (4)
  1. STRATTERA [Suspect]
     Indication: ATTENTION DEFICIT/HYPERACTIVITY DISORDER
     Dosage: 40 MG/DAY
     Dates: start: 20031218
  2. ELAVIL [Concomitant]
  3. XANAX [Concomitant]
  4. CLONOPIN(CLONAZEPAM) [Concomitant]

REACTIONS (3)
  - DISTURBANCE IN ATTENTION [None]
  - DRUG INEFFECTIVE [None]
  - STOMACH DISCOMFORT [None]
